FAERS Safety Report 6288291-6 (Version None)
Quarter: 2009Q3

REPORT INFORMATION
  Report Type: 
  Country: None (occurrence: None)
  Receive Date: 20090729
  Receipt Date: 20090720
  Transmission Date: 20100115
  Serious: Yes (Hospitalization)
  Sender: FDA-Public Use
  Company Number: BR-NOVOPROD-288100

PATIENT
  Age: 53 Year
  Sex: Female

DRUGS (2)
  1. NOVOLOG MIX 70/30 [Suspect]
     Indication: DRUG USE FOR UNKNOWN INDICATION
     Dosage: 28+28+24 IU
  2. NOVOLOG MIX 70/30 [Suspect]

REACTIONS (4)
  - BLOOD GLUCOSE INCREASED [None]
  - DISCOMFORT [None]
  - HYPERTENSION [None]
  - PRODUCT QUALITY ISSUE [None]
